FAERS Safety Report 8608812-5 (Version None)
Quarter: 2012Q3

REPORT INFORMATION
  Report Type: 
  Country: None (occurrence: None)
  Receive Date: 20120821
  Receipt Date: 20120815
  Transmission Date: 20120928
  Serious: No
  Sender: FDA-Public Use
  Company Number: US-TEVA-353506USA

PATIENT
  Sex: Male
  Weight: 76.272 kg

DRUGS (4)
  1. AZILECT [Suspect]
     Indication: PARKINSON'S DISEASE
     Dosage: .5 MILLIGRAM DAILY;
     Route: 048
     Dates: start: 20120727
  2. CARBIDOPA + LEVODOPA [Suspect]
     Indication: PARKINSON'S DISEASE
  3. AMLODIPINE [Concomitant]
  4. ASPIRIN [Concomitant]

REACTIONS (10)
  - ARTHRALGIA [None]
  - DECREASED APPETITE [None]
  - WEIGHT DECREASED [None]
  - NAUSEA [None]
  - EXERCISE TOLERANCE DECREASED [None]
  - MUSCLE TWITCHING [None]
  - CONSTIPATION [None]
  - PAIN IN EXTREMITY [None]
  - INSOMNIA [None]
  - INCREASED APPETITE [None]
